FAERS Safety Report 21549328 (Version 1)
Quarter: 2022Q4

REPORT INFORMATION
  Report Type: Spontaneous
  Country: US (occurrence: US)
  Receive Date: 20221103
  Receipt Date: 20221103
  Transmission Date: 20230112
  Serious: No
  Sender: FDA-Public Use
  Company Number: US-BRISTOL-MYERS SQUIBB COMPANY-2022-131848

PATIENT
  Age: 89 Year
  Sex: Female
  Weight: 73.935 kg

DRUGS (2)
  1. ELIQUIS [Suspect]
     Active Substance: APIXABAN
     Indication: Pulmonary embolism
     Route: 048
     Dates: start: 20220708
  2. SUCRALOSE [Concomitant]
     Active Substance: SUCRALOSE
     Indication: Product used for unknown indication
     Route: 065

REACTIONS (2)
  - Weight increased [Unknown]
  - Breast enlargement [Unknown]

NARRATIVE: CASE EVENT DATE: 20220101
